FAERS Safety Report 7026183-5 (Version None)
Quarter: 2010Q4

REPORT INFORMATION
  Report Type: 
  Country: None (occurrence: None)
  Receive Date: 20101004
  Receipt Date: 20100927
  Transmission Date: 20110411
  Serious: No
  Sender: FDA-Public Use
  Company Number: 2009BI018954

PATIENT
  Age: 38 Year
  Sex: Male

DRUGS (2)
  1. TYSABRI [Suspect]
     Indication: MULTIPLE SCLEROSIS
     Route: 042
     Dates: start: 20061103, end: 20091021
  2. TYSABRI [Suspect]
     Route: 042
     Dates: start: 20100506

REACTIONS (8)
  - APHASIA [None]
  - CARPAL TUNNEL SYNDROME [None]
  - COGNITIVE DISORDER [None]
  - INSOMNIA [None]
  - MEMORY IMPAIRMENT [None]
  - MULTIPLE SCLEROSIS RELAPSE [None]
  - SLEEP APNOEA SYNDROME [None]
  - STRESS [None]
